FAERS Safety Report 13410645 (Version 3)
Quarter: 2019Q3

REPORT INFORMATION
  Report Type: Spontaneous
  Country: US (occurrence: US)
  Receive Date: 20170406
  Receipt Date: 20190711
  Transmission Date: 20191004
  Serious: No
  Sender: FDA-Public Use
  Company Number: US-JNJFOC-20170227585

PATIENT
  Sex: Male

DRUGS (10)
  1. RISPERIDONE. [Suspect]
     Active Substance: RISPERIDONE
     Route: 048
     Dates: start: 20001019, end: 20031103
  2. RISPERIDONE. [Suspect]
     Active Substance: RISPERIDONE
     Indication: BIPOLAR DISORDER
     Dosage: 0.25 MG QHSX2NIGHT AND 0.5 MGX1WEEK AND 1MGX A WEEK AND 2 MGX1 WEEK
     Route: 048
     Dates: start: 20001019
  3. RISPERIDONE. [Suspect]
     Active Substance: RISPERIDONE
     Route: 048
     Dates: start: 20010505, end: 20030514
  4. RISPERIDONE. [Suspect]
     Active Substance: RISPERIDONE
     Route: 048
     Dates: start: 20010913, end: 20011109
  5. RISPERIDONE. [Suspect]
     Active Substance: RISPERIDONE
     Dosage: QHS
     Route: 048
     Dates: start: 20001116, end: 20010112
  6. RISPERIDONE. [Suspect]
     Active Substance: RISPERIDONE
     Route: 048
     Dates: start: 20030607, end: 20031007
  7. RISPERIDONE. [Suspect]
     Active Substance: RISPERIDONE
     Indication: ATTENTION DEFICIT/HYPERACTIVITY DISORDER
     Dosage: AS AND WHEN NECESSARY (PRN)
     Route: 048
     Dates: start: 20000718
  8. RISPERIDONE. [Suspect]
     Active Substance: RISPERIDONE
     Dosage: QHS
     Route: 048
     Dates: start: 20010201, end: 20010403
  9. RISPERIDONE. [Suspect]
     Active Substance: RISPERIDONE
     Route: 048
     Dates: start: 20011013, end: 20021031
  10. RISPERIDONE. [Suspect]
     Active Substance: RISPERIDONE
     Route: 048
     Dates: end: 20031103

REACTIONS (2)
  - Emotional distress [Unknown]
  - Gynaecomastia [Unknown]
